FAERS Safety Report 7631958-5 (Version None)
Quarter: 2011Q3

REPORT INFORMATION
  Report Type: 
  Country: None (occurrence: None)
  Receive Date: 20110725
  Receipt Date: 20110516
  Transmission Date: 20111222
  Serious: No
  Sender: FDA-Public Use
  Company Number: US-BRISTOL-MYERS SQUIBB COMPANY-15748353

PATIENT
  Age: 62 Year
  Sex: Female
  Weight: 75 kg

DRUGS (2)
  1. SIMVASTATIN [Concomitant]
  2. COUMADIN [Suspect]
     Indication: THROMBOSIS
     Dosage: 1DF=2.5 MG ON MONDAYS AND FRIDAYS+5 MG THE REST OF THE WEEK
     Dates: start: 19700101

REACTIONS (1)
  - PROTHROMBIN LEVEL DECREASED [None]
